APPROVED DRUG PRODUCT: HEPARIN SODIUM 25,000 UNITS IN DEXTROSE 5% IN PLASTIC CONTAINER
Active Ingredient: HEPARIN SODIUM
Strength: 5,000 UNITS/100ML
Dosage Form/Route: INJECTABLE;INJECTION
Application: N019134 | Product #001
Applicant: B BRAUN MEDICAL INC
Approved: Mar 29, 1985 | RLD: No | RS: No | Type: DISCN